FAERS Safety Report 4363644-1 (Version None)
Quarter: 2004Q2

REPORT INFORMATION
  Report Type: 
  Country: None (occurrence: None)
  Receive Date: 20040524
  Receipt Date: 20040524
  Transmission Date: 20050107
  Serious: No
  Sender: FDA-Public Use
  Company Number: None

PATIENT
  Sex: Male
  Weight: 132.4503 kg

DRUGS (1)
  1. TAXOL [Suspect]

REACTIONS (4)
  - CHEST PAIN [None]
  - CORONARY ARTERY THROMBOSIS [None]
  - STENT OCCLUSION [None]
  - VASCULAR CALCIFICATION [None]
